FAERS Safety Report 8845345 (Version 1)
Quarter: 2012Q4

REPORT INFORMATION
  Report Type: 
  Country: BA (occurrence: BA)
  Receive Date: 20121017
  Receipt Date: 20121017
  Transmission Date: 20130627
  Serious: Yes (Other)
  Sender: FDA-Public Use
  Company Number: BA-PFIZER INC-2012256619

PATIENT
  Age: 61 Year
  Sex: Female

DRUGS (4)
  1. TRITACE [Suspect]
     Indication: MYOCARDIAL INFARCTION
     Dosage: 5 mg, once daily
     Route: 048
     Dates: start: 2003, end: 20120626
  2. ATORVASTATIN CALCIUM [Interacting]
     Indication: CORONARY ARTERY BYPASS
     Dosage: 20 mg, once daily
     Route: 048
     Dates: start: 2003
  3. ASPIRIN [Interacting]
     Indication: CORONARY ARTERY BYPASS
     Dosage: 100 mg, once daily
     Route: 048
     Dates: start: 2003
  4. BYOL [Concomitant]
     Dosage: UNK

REACTIONS (2)
  - Drug interaction [Recovered/Resolved]
  - Thrombocytopenia [Recovered/Resolved]
